FAERS Safety Report 22396352 (Version 1)
Quarter: 2023Q2

REPORT INFORMATION
  Report Type: Spontaneous
  Country: US (occurrence: US)
  Receive Date: 20230601
  Receipt Date: 20230601
  Transmission Date: 20230722
  Serious: No
  Sender: FDA-Public Use
  Company Number: US-APIL-2310637US

PATIENT
  Age: 62 Year
  Sex: Female
  Weight: 72.574 kg

DRUGS (5)
  1. BOTOX COSMETIC [Suspect]
     Active Substance: ONABOTULINUMTOXINA
     Indication: Face lift
     Dosage: 2 UNITS, SINGLE
     Route: 030
     Dates: start: 20230225, end: 20230225
  2. BOTOX COSMETIC [Suspect]
     Active Substance: ONABOTULINUMTOXINA
     Indication: Skin wrinkling
     Dosage: 6 UNITS, SINGLE
     Route: 030
     Dates: start: 20230216, end: 20230216
  3. BOTOX COSMETIC [Suspect]
     Active Substance: ONABOTULINUMTOXINA
     Indication: Skin wrinkling
     Dosage: 60 UNITS, SINGLE
     Route: 030
     Dates: start: 20230216, end: 20230216
  4. BOTOX COSMETIC [Suspect]
     Active Substance: ONABOTULINUMTOXINA
     Dosage: UNK, SINGLE
     Route: 030
     Dates: start: 20221203, end: 20221203
  5. BOTOX COSMETIC [Suspect]
     Active Substance: ONABOTULINUMTOXINA
     Dosage: UNK, SINGLE
     Route: 030
     Dates: start: 20221110, end: 20221110

REACTIONS (5)
  - Off label use [Unknown]
  - Brow ptosis [Not Recovered/Not Resolved]
  - Product quality issue [Unknown]
  - Skin wrinkling [Not Recovered/Not Resolved]
  - Drug ineffective for unapproved indication [Unknown]

NARRATIVE: CASE EVENT DATE: 20221101
